FAERS Safety Report 10177464 (Version 3)
Quarter: 2014Q3

REPORT INFORMATION
  Report Type: Report from Study
  Country: CN (occurrence: CN)
  Receive Date: 20140516
  Receipt Date: 20140822
  Transmission Date: 20150326
  Serious: Yes (Hospitalization)
  Sender: FDA-Public Use
  Company Number: PHHY2013CN123319

PATIENT
  Age: 71 Year
  Sex: Female
  Weight: 62 kg

DRUGS (4)
  1. VAA489A [Suspect]
     Active Substance: AMLODIPINE\VALSARTAN
     Indication: HYPERTENSION
     Dosage: 1 DF, QD (80 MG VALS, 5 MG AMLO)
     Route: 048
     Dates: start: 20121101, end: 20130910
  2. DIOVAN [Concomitant]
     Active Substance: VALSARTAN
     Indication: HYPERTENSION
     Dosage: 80 MG, UNK
     Dates: start: 20130910
  3. METOPROLOL [Concomitant]
     Active Substance: METOPROLOL
     Indication: HYPERTENSION
     Dosage: 475 MG, UNK
     Dates: start: 20130910
  4. BAYASPIRIN [Concomitant]
     Active Substance: ASPIRIN
     Indication: HYPERTENSION
     Dosage: 100 MG, UNK
     Dates: start: 20130910

REACTIONS (4)
  - Angina unstable [Recovered/Resolved]
  - Coronary artery disease [Recovered/Resolved]
  - Coronary artery stenosis [Recovered/Resolved]
  - Chest discomfort [Recovered/Resolved]

NARRATIVE: CASE EVENT DATE: 20130909
